FAERS Safety Report 9882935 (Version 1)
Quarter: 2014Q1

REPORT INFORMATION
  Report Type: Spontaneous
  Country: ES (occurrence: ES)
  Receive Date: 20140208
  Receipt Date: 20140208
  Transmission Date: 20141002
  Serious: Yes (Other)
  Sender: FDA-Public Use
  Company Number: ES-ROCHE-1346336

PATIENT
  Age: 82 Year
  Sex: Female

DRUGS (6)
  1. RITUXIMAB [Suspect]
     Indication: AUTOIMMUNE HAEMOLYTIC ANAEMIA
     Route: 065
  2. RITUXIMAB [Suspect]
     Indication: THROMBOCYTOPENIA
  3. CYCLOPHOSPHAMIDE [Suspect]
     Indication: AUTOIMMUNE HAEMOLYTIC ANAEMIA
     Route: 065
  4. CYCLOPHOSPHAMIDE [Suspect]
     Indication: THROMBOCYTOPENIA
  5. DEXAMETHASONE [Suspect]
     Indication: AUTOIMMUNE HAEMOLYTIC ANAEMIA
     Route: 065
  6. DEXAMETHASONE [Suspect]
     Indication: THROMBOCYTOPENIA

REACTIONS (1)
  - Fungal infection [Unknown]
